FAERS Safety Report 9629283 (Version 1)
Quarter: 2013Q4

REPORT INFORMATION
  Report Type: Spontaneous
  Country: US (occurrence: US)
  Receive Date: 20131017
  Receipt Date: 20131017
  Transmission Date: 20140711
  Serious: No
  Sender: FDA-Public Use
  Company Number: US-ASTRAZENECA-2013SE73454

PATIENT
  Age: 85 Year
  Sex: Male
  Weight: 81.6 kg

DRUGS (10)
  1. SYMBICORT [Suspect]
     Indication: EMPHYSEMA
     Dosage: 160/4.5 MCG,2 PUFFS BID
     Route: 055
     Dates: start: 20130412, end: 20130921
  2. LISINOPRIL [Suspect]
     Indication: HYPERTENSION
     Route: 048
     Dates: start: 2012
  3. OMEPRAZOLE [Suspect]
     Indication: GASTROOESOPHAGEAL REFLUX DISEASE
     Route: 048
  4. ROSUVASTATIN [Suspect]
     Indication: BLOOD CHOLESTEROL ABNORMAL
     Route: 048
  5. COMBIVENT [Concomitant]
     Indication: DYSPNOEA
     Dosage: 1 PUFF, AS REQUIRED
     Route: 055
     Dates: start: 201306
  6. DENTOSAN POLYETHEL NA [Concomitant]
     Indication: PROSTATE CANCER
     Dates: start: 1993
  7. ASPIRIN [Concomitant]
     Indication: ANTICOAGULANT THERAPY
  8. FUROSEMIDE [Concomitant]
     Indication: DYSPNOEA
     Dates: start: 201307
  9. ISOSORBIDE MONONITRATE [Concomitant]
     Indication: DYSPNOEA
     Dates: start: 201307
  10. ADVAIR [Concomitant]

REACTIONS (3)
  - Dyspnoea [Unknown]
  - Off label use [Unknown]
  - Drug ineffective [Unknown]
